FAERS Safety Report 5613584-2 (Version None)
Quarter: 2008Q1

REPORT INFORMATION
  Report Type: 
  Country: None (occurrence: None)
  Receive Date: 20080205
  Receipt Date: 20080201
  Transmission Date: 20080703
  Serious: Yes (Death)
  Sender: FDA-Public Use
  Company Number: PHEH2007US16188

PATIENT
  Age: 76 Year
  Sex: Male
  Weight: 49 kg

DRUGS (1)
  1. EXJADE [Suspect]
     Indication: IRON OVERLOAD
     Dosage: 750MG DAILY
     Route: 048
     Dates: end: 20071117

REACTIONS (2)
  - LUNG NEOPLASM MALIGNANT [None]
  - MYELODYSPLASTIC SYNDROME [None]
